FAERS Safety Report 7359917-0 (Version None)
Quarter: 2011Q1

REPORT INFORMATION
  Report Type: 
  Country: None (occurrence: None)
  Receive Date: 20110317
  Receipt Date: 20110311
  Transmission Date: 20110831
  Serious: Yes (Hospitalization, Other)
  Sender: FDA-Public Use
  Company Number: JP-PFIZER INC-2011036993

PATIENT
  Age: 63 Year
  Sex: Male
  Weight: 61 kg

DRUGS (18)
  1. LYRICA [Suspect]
     Indication: NEURALGIA
     Dosage: 75 MG PER DAY
     Route: 048
     Dates: start: 20110208, end: 20110215
  2. PARIET [Concomitant]
     Indication: GASTRITIS
     Dosage: 10 MG, 2X/DAY
     Route: 048
  3. LANTHANUM CARBONATE [Concomitant]
     Indication: HYPERPHOSPHATAEMIA
     Dosage: 250 MG, 1X/DAY
     Route: 048
  4. DARBEPOETIN ALFA [Concomitant]
     Indication: NEPHROGENIC ANAEMIA
     Dosage: 20 UG, WEEKLY
     Route: 042
  5. LOPRESSOR [Concomitant]
     Dosage: 20 MG, 3X/DAY
     Route: 048
  6. DAI-KENCHU-TO [Concomitant]
     Indication: CONSTIPATION
     Dosage: 2.5 G, 3X/DAY
     Route: 048
  7. OPALMON [Concomitant]
     Indication: ARTERIOSCLEROSIS OBLITERANS
     Dosage: 5 UG, 3X/DAY
     Route: 048
  8. VOLTAREN [Concomitant]
     Indication: PAIN
     Dosage: 25 MG, 2X/DAY
     Route: 048
  9. AMOBAN [Concomitant]
     Indication: INSOMNIA
     Dosage: 15 MG, 1X/DAY
     Route: 048
  10. PLAVIX [Concomitant]
     Indication: CEREBRAL INFARCTION
     Dosage: 75 MG, 1X/DAY
     Route: 048
  11. ASPIRIN [Concomitant]
     Indication: CEREBRAL INFARCTION
     Dosage: 100 MG, 1X/DAY
     Route: 048
  12. ATARAX [Suspect]
     Indication: INSOMNIA
     Dosage: 25 MG, 1X/DAY
     Route: 048
     Dates: start: 20110208, end: 20110215
  13. CALCIUM CARBONATE [Concomitant]
     Indication: HYPERPHOSPHATAEMIA
     Dosage: 1 G, 3X/DAY
     Route: 048
  14. SIGMART [Concomitant]
     Indication: ANGINA PECTORIS
     Dosage: 5 MG, 3X/DAY
     Route: 048
  15. ALFAROL [Concomitant]
     Indication: HYPERPARATHYROIDISM SECONDARY
     Dosage: 0.25 UG, 1X/DAY
     Route: 048
  16. AMLODIPINE [Concomitant]
     Indication: HYPERTENSION
     Dosage: 10 MG, 1X/DAY
     Route: 048
  17. MUCOSTA [Concomitant]
     Indication: GASTRITIS
     Dosage: 100 MG, 3X/DAY
     Route: 048
  18. DIOVAN [Concomitant]
     Indication: HYPERTENSION
     Dosage: 150 MG, 1X/DAY
     Route: 048

REACTIONS (5)
  - MALAISE [None]
  - LOSS OF CONSCIOUSNESS [None]
  - SOMNOLENCE [None]
  - FALL [None]
  - DIZZINESS [None]
